FAERS Safety Report 5205177-6 (Version None)
Quarter: 2007Q1

REPORT INFORMATION
  Report Type: 
  Country: None (occurrence: None)
  Receive Date: 20070108
  Receipt Date: 20061225
  Transmission Date: 20070707
  Serious: Yes (Life-Threatening, Hospitalization)
  Sender: FDA-Public Use
  Company Number: RENA-12004

PATIENT
  Age: 58 Year
  Sex: Male
  Weight: 63 kg

DRUGS (14)
  1. RENAGEL [Suspect]
     Indication: HYPERPHOSPHATAEMIA
     Dosage: 4.5 G TID PO
     Route: 048
     Dates: start: 20060318
  2. RENAGEL [Suspect]
     Indication: HYPERPHOSPHATAEMIA
     Dosage: 0.5 G BID PO
     Route: 048
     Dates: start: 20030815, end: 20030826
  3. RENAGEL [Suspect]
     Indication: HYPERPHOSPHATAEMIA
     Dosage: 1.5 G TID PO
     Route: 048
     Dates: start: 20030827, end: 20031205
  4. RENAGEL [Suspect]
     Indication: HYPERPHOSPHATAEMIA
     Dosage: 2.25 G TID PO
     Route: 048
     Dates: start: 20031206, end: 20040402
  5. RENAGEL [Suspect]
     Indication: HYPERPHOSPHATAEMIA
     Dosage: 3 G TID PO
     Route: 048
     Dates: start: 20040403, end: 20040514
  6. RENAGEL [Suspect]
     Indication: HYPERPHOSPHATAEMIA
     Dosage: 3.75 G TID PO
     Route: 048
     Dates: start: 20040515, end: 20060317
  7. ASPIRIN [Suspect]
     Indication: DRUG USE FOR UNKNOWN INDICATION
     Dosage: 100 MG QD PO
     Route: 048
     Dates: start: 20011214
  8. KALIMATE [Suspect]
     Indication: HYPERKALAEMIA
     Dosage: 5 G TID PO
     Route: 048
     Dates: start: 20060218
  9. KALIMATE [Suspect]
     Indication: HYPERKALAEMIA
     Dosage: 5 G BID PO
     Route: 048
     Dates: start: 20050709, end: 20060217
  10. BLOPRESS [Concomitant]
  11. ARTIST [Concomitant]
  12. TAKEPRON [Concomitant]
  13. PURSENNID [Concomitant]
  14. ALOSENN [Concomitant]

REACTIONS (4)
  - BLOOD PRESSURE DECREASED [None]
  - CONSTIPATION [None]
  - HYPERKALAEMIA [None]
  - LARGE INTESTINE PERFORATION [None]
